FAERS Safety Report 5104903-4 (Version None)
Quarter: 2006Q3

REPORT INFORMATION
  Report Type: 
  Country: None (occurrence: None)
  Receive Date: 20060914
  Receipt Date: 20060908
  Transmission Date: 20061208
  Serious: Yes (Death, Hospitalization)
  Sender: FDA-Public Use
  Company Number: PHBS2006KR13707

PATIENT
  Age: 42 Year
  Sex: Male

DRUGS (3)
  1. IMATINIB [Suspect]
     Indication: CHRONIC MYELOID LEUKAEMIA
     Dosage: 300 MG/D TO 400 MG/DAY
     Route: 065
  2. IMATINIB [Suspect]
     Dosage: 600 MG/DAY
     Route: 065
  3. IMATINIB [Suspect]
     Dosage: 800 MG/DAY
     Route: 065

REACTIONS (15)
  - BACK PAIN [None]
  - BLAST CRISIS IN MYELOGENOUS LEUKAEMIA [None]
  - BRAIN COMPRESSION [None]
  - BRAIN MASS [None]
  - BRAIN OEDEMA [None]
  - CEREBRAL DECOMPRESSION [None]
  - CRANIECTOMY [None]
  - CSF PRESSURE INCREASED [None]
  - HEADACHE [None]
  - HYDROCEPHALUS [None]
  - INTERVERTEBRAL DISC OPERATION [None]
  - INTERVERTEBRAL DISC PROTRUSION [None]
  - INTRACRANIAL PRESSURE INCREASED [None]
  - LEUKAEMIC INFILTRATION BRAIN [None]
  - VERTIGO [None]
